FAERS Safety Report 20478395 (Version 1)
Quarter: 2022Q1

REPORT INFORMATION
  Report Type: Spontaneous
  Country: IT (occurrence: IT)
  Receive Date: 20220216
  Receipt Date: 20220216
  Transmission Date: 20220423
  Serious: Yes (Hospitalization, Other)
  Sender: FDA-Public Use
  Company Number: IT-SUN PHARMACEUTICAL INDUSTRIES LTD-2022RR-326678

PATIENT
  Age: 33 Year
  Sex: Female

DRUGS (11)
  1. GEMCITABINE [Suspect]
     Active Substance: GEMCITABINE
     Indication: Hodgkin^s disease
     Dosage: UNK
     Route: 065
     Dates: start: 200905
  2. MELPHALAN [Suspect]
     Active Substance: MELPHALAN
     Indication: Hodgkin^s disease
     Dosage: HDM, 200 MG/MQ
     Route: 065
     Dates: start: 200910
  3. DOXORUBICIN [Suspect]
     Active Substance: DOXORUBICIN
     Indication: Grey zone lymphoma
     Dosage: 4 CYCLES
     Route: 065
     Dates: start: 201002
  4. VINCRISTINE [Suspect]
     Active Substance: VINCRISTINE
     Indication: Grey zone lymphoma
     Dosage: 4 CYCLES
     Route: 065
     Dates: start: 201002
  5. PREDNISONE [Suspect]
     Active Substance: PREDNISONE
     Indication: Grey zone lymphoma
     Dosage: 4 CYCLES
     Route: 065
     Dates: start: 201002
  6. RITUXIMAB [Suspect]
     Active Substance: RITUXIMAB
     Indication: Grey zone lymphoma
     Dosage: 4 CYCLES
     Route: 065
     Dates: start: 201002
  7. IFOSFAMIDE [Suspect]
     Active Substance: IFOSFAMIDE
     Indication: Hodgkin^s disease
     Dosage: UNK
     Route: 065
     Dates: start: 200905
  8. VINORELBINE [Suspect]
     Active Substance: VINORELBINE TARTRATE
     Indication: Hodgkin^s disease
     Dosage: UNK
     Route: 065
     Dates: start: 200905
  9. ETOPOSIDE [Suspect]
     Active Substance: ETOPOSIDE
     Indication: Grey zone lymphoma
     Dosage: 4 CYCLES
     Route: 065
     Dates: start: 201002
  10. CYCLOPHOSPHAMIDE [Suspect]
     Active Substance: CYCLOPHOSPHAMIDE
     Indication: Grey zone lymphoma
     Dosage: 4 CYCLES
     Route: 065
     Dates: start: 201002
  11. BENDAMUSTINE [Suspect]
     Active Substance: BENDAMUSTINE
     Indication: Grey zone lymphoma
     Dosage: 2 CYCLES
     Route: 065
     Dates: start: 201005

REACTIONS (2)
  - Disease recurrence [Unknown]
  - Disease progression [Unknown]
